FAERS Safety Report 15724691 (Version 1)
Quarter: 2018Q4

REPORT INFORMATION
  Report Type: Spontaneous
  Country: CN (occurrence: CN)
  Receive Date: 20181214
  Receipt Date: 20181214
  Transmission Date: 20190205
  Serious: Yes (Hospitalization)
  Sender: FDA-Public Use
  Company Number: CN-EISAI MEDICAL RESEARCH-EC-2018-048998

PATIENT
  Age: 44 Year
  Sex: Male

DRUGS (1)
  1. LENVIMA [Suspect]
     Active Substance: LENVATINIB
     Indication: HEPATIC CANCER
     Route: 048
     Dates: start: 20181130

REACTIONS (5)
  - Haemorrhage intracranial [Unknown]
  - Headache [Unknown]
  - Brain midline shift [Unknown]
  - Cerebral infarction [Unknown]
  - Hernia [Unknown]

NARRATIVE: CASE EVENT DATE: 20181206
